FAERS Safety Report 5432211-0 (Version None)
Quarter: 2007Q3

REPORT INFORMATION
  Report Type: 
  Country: None (occurrence: None)
  Receive Date: 20070830
  Receipt Date: 20070818
  Transmission Date: 20080115
  Serious: Yes (Other)
  Sender: FDA-Public Use
  Company Number: US-PFIZER INC-2007059932

PATIENT
  Sex: Female
  Weight: 68 kg

DRUGS (12)
  1. CHANTIX [Suspect]
     Indication: SMOKING CESSATION THERAPY
  2. KEFLEX [Suspect]
     Indication: LIP EXFOLIATION
     Dates: start: 20070101, end: 20070101
  3. PREMPRO [Concomitant]
     Dosage: TEXT:0.625/2.5 MILLIGRAM
     Route: 048
  4. PAXIL [Concomitant]
     Route: 048
  5. LIPITOR [Concomitant]
  6. DETROL LA [Concomitant]
  7. THEOPHYLLINE [Concomitant]
  8. CLOTRIMAZOLE [Concomitant]
  9. FLUCONAZOLE [Concomitant]
  10. ADVAIR DISKUS 100/50 [Concomitant]
     Dosage: TEXT:250/50 ONE INHALATION
     Route: 055
  11. LOVASTATIN [Concomitant]
     Route: 048
  12. COMBIVENT [Concomitant]
     Dosage: TEXT:2 PUFFS

REACTIONS (4)
  - CHEILITIS [None]
  - LIP EXFOLIATION [None]
  - LIP PAIN [None]
  - PAIN [None]
